FAERS Safety Report 8054093-3 (Version None)
Quarter: 2012Q1

REPORT INFORMATION
  Report Type: 
  Country: None (occurrence: None)
  Receive Date: 20120118
  Receipt Date: 20120111
  Transmission Date: 20120608
  Serious: Yes (Hospitalization)
  Sender: FDA-Public Use
  Company Number: PHHY2011GB96311

PATIENT
  Sex: Female

DRUGS (3)
  1. TACROLIMUS [Suspect]
  2. CINACALCET HYDROCHLORIDE [Suspect]
  3. ESOMEPRAZOLE SODIUM [Suspect]

REACTIONS (2)
  - INAPPROPRIATE ANTIDIURETIC HORMONE SECRETION [None]
  - HYPONATRAEMIA [None]
